FAERS Safety Report 8300835-9 (Version None)
Quarter: 2012Q2

REPORT INFORMATION
  Report Type: 
  Country: None (occurrence: None)
  Receive Date: 20120420
  Receipt Date: 20120411
  Transmission Date: 20120825
  Serious: Yes (Other)
  Sender: FDA-Public Use
  Company Number: US-JNJFOC-20120405344

PATIENT
  Sex: Male

DRUGS (2)
  1. REMICADE [Suspect]
     Route: 042
     Dates: start: 20120328
  2. REMICADE [Suspect]
     Indication: COLITIS ULCERATIVE
     Route: 042
     Dates: start: 20110101

REACTIONS (3)
  - INFUSION RELATED REACTION [None]
  - PAIN IN EXTREMITY [None]
  - HYPERSENSITIVITY [None]
